FAERS Safety Report 15917331 (Version 3)
Quarter: 2019Q3

REPORT INFORMATION
  Report Type: Report from Study
  Country: GR (occurrence: GR)
  Receive Date: 20190205
  Receipt Date: 20190701
  Transmission Date: 20191004
  Serious: Yes (Hospitalization, Other)
  Sender: FDA-Public Use
  Company Number: GR-SA-2018SA046440

PATIENT
  Age: 29 Year
  Sex: Male
  Weight: 79 kg

DRUGS (12)
  1. APOTEL [Concomitant]
     Active Substance: ACETAMINOPHEN
     Indication: PROPHYLAXIS
     Dosage: 300 MG,UNK
     Route: 042
     Dates: start: 20180122, end: 20180126
  2. VALTREX [Concomitant]
     Active Substance: VALACYCLOVIR HYDROCHLORIDE
     Indication: PROPHYLAXIS
     Dosage: 1000 MG,UNK
     Route: 042
     Dates: start: 20180120
  3. FENISTIL [Concomitant]
     Active Substance: DIMETHINDENE
     Indication: PROPHYLAXIS
     Dosage: 4 MG,UNK
     Route: 042
     Dates: start: 20180122, end: 20180126
  4. BACTRIMEL [Concomitant]
     Active Substance: SULFAMETHOXAZOLE\TRIMETHOPRIM
     Indication: PROPHYLAXIS
     Dosage: 960 MG,UNK
     Route: 048
     Dates: start: 20180203
  5. LORDIN [OMEPRAZOLE] [Concomitant]
     Indication: PROPHYLAXIS
     Dosage: 40 MG,UNK
     Route: 042
     Dates: start: 20180122, end: 20180126
  6. SOLU-MEDROL [Concomitant]
     Active Substance: METHYLPREDNISOLONE SODIUM SUCCINATE
     Indication: PROPHYLAXIS
     Dosage: 1000 MG,UNK
     Route: 042
     Dates: start: 20180122, end: 20180126
  7. XOZAL [Concomitant]
     Active Substance: LEVOCETIRIZINE
     Indication: PROPHYLAXIS
     Dosage: 10 MG,UNK
     Route: 042
     Dates: start: 20180120, end: 20180121
  8. SPORANOX [Concomitant]
     Active Substance: ITRACONAZOLE
     Indication: PROPHYLAXIS
     Dosage: 100 MG,UNK
     Route: 048
     Dates: start: 20180130
  9. CIPRALEX [Concomitant]
     Active Substance: ESCITALOPRAM OXALATE
     Indication: DEPRESSION
     Dosage: 15 MG,UNK
     Route: 048
     Dates: start: 201707
  10. ALEMTUZUMAB [Suspect]
     Active Substance: ALEMTUZUMAB
     Indication: MULTIPLE SCLEROSIS RELAPSE
     Dosage: 12 MG,QD
     Route: 041
     Dates: start: 20180122, end: 20180126
  11. XANAX [Concomitant]
     Active Substance: ALPRAZOLAM
     Indication: DEPRESSION
     Dosage: .5 MG,UNK
     Route: 048
     Dates: start: 201507
  12. ZOFRAN [Concomitant]
     Active Substance: ONDANSETRON HYDROCHLORIDE
     Indication: PROPHYLAXIS
     Dosage: 8 MG,UNK
     Route: 042
     Dates: start: 20180122, end: 20180126

REACTIONS (5)
  - Cholecystitis acute [Recovered/Resolved]
  - Respiratory tract infection [Recovered/Resolved]
  - Autoimmune haemolytic anaemia [Recovered/Resolved]
  - Blood lactate dehydrogenase increased [Recovered/Resolved]
  - C-reactive protein increased [Recovered/Resolved]

NARRATIVE: CASE EVENT DATE: 20180124
